FAERS Safety Report 5174921-9 (Version None)
Quarter: 2006Q4

REPORT INFORMATION
  Report Type: 
  Country: None (occurrence: None)
  Receive Date: 20061214
  Receipt Date: 20040429
  Transmission Date: 20070319
  Serious: No
  Sender: FDA-Public Use
  Company Number: US-AMGEN-KDL075616

PATIENT
  Sex: Female

DRUGS (4)
  1. ENBREL [Suspect]
     Indication: PSORIATIC ARTHROPATHY
     Route: 058
     Dates: start: 20030201
  2. ENBREL [Suspect]
     Indication: RHEUMATOID ARTHRITIS
  3. SULFASALAZINE [Concomitant]
  4. MOBIC [Concomitant]

REACTIONS (5)
  - ABDOMINAL PAIN [None]
  - CONDITION AGGRAVATED [None]
  - FIBROMYALGIA [None]
  - HEPATIC ENZYME INCREASED [None]
  - VOMITING [None]
